FAERS Safety Report 12196118 (Version 3)
Quarter: 2016Q2

REPORT INFORMATION
  Report Type: Spontaneous
  Country: JP (occurrence: JP)
  Receive Date: 20160321
  Receipt Date: 20160624
  Transmission Date: 20160815
  Serious: Yes (Death, Other)
  Sender: FDA-Public Use
  Company Number: JP-ASTRAZENECA-2016SE30550

PATIENT
  Age: 29138 Day
  Sex: Female
  Weight: 65 kg

DRUGS (10)
  1. YOKUKANSAN [Concomitant]
     Active Substance: HERBALS
     Dates: start: 20160128, end: 20160209
  2. MEMARY [Concomitant]
     Active Substance: MEMANTINE HYDROCHLORIDE
     Dates: start: 20160218
  3. DOMPERIDONE [Concomitant]
     Active Substance: DOMPERIDONE
     Dates: end: 2016
  4. SEROQUEL [Suspect]
     Active Substance: QUETIAPINE FUMARATE
     Indication: PSYCHOMOTOR HYPERACTIVITY
     Route: 048
     Dates: start: 20160219
  5. ARICEPT [Concomitant]
     Active Substance: DONEPEZIL HYDROCHLORIDE
     Dates: start: 20160128, end: 20160209
  6. BAYASPIRIN [Concomitant]
     Active Substance: ASPIRIN
     Dates: end: 2016
  7. ZOLPIDEM [Concomitant]
     Active Substance: ZOLPIDEM\ZOLPIDEM TARTRATE
     Dates: end: 2016
  8. AMLODIPINE [Concomitant]
     Active Substance: AMLODIPINE BESYLATE
     Dates: end: 2016
  9. ALACEPRIL [Concomitant]
     Active Substance: ALACEPRIL
     Dates: end: 2016
  10. OMEPRAZOLE. [Concomitant]
     Active Substance: OMEPRAZOLE
     Dates: end: 2016

REACTIONS (9)
  - Hyperglycaemia [Fatal]
  - Dyspnoea [Unknown]
  - Cardiac arrest [Fatal]
  - Pulmonary embolism [Unknown]
  - Arrhythmia [Fatal]
  - Fatigue [Unknown]
  - Product use issue [Unknown]
  - Off label use [Unknown]
  - Pleural effusion [Unknown]

NARRATIVE: CASE EVENT DATE: 20160301
